FAERS Safety Report 5369873-2 (Version None)
Quarter: 2007Q2

REPORT INFORMATION
  Report Type: 
  Country: None (occurrence: None)
  Receive Date: 20070621
  Receipt Date: 20070608
  Transmission Date: 20071010
  Serious: Yes (Hospitalization)
  Sender: FDA-Public Use
  Company Number: 2007RR-08045

PATIENT
  Age: 29 Year
  Sex: Male
  Weight: 89.6 kg

DRUGS (2)
  1. IBUPROFEN [Suspect]
     Indication: TENDON DISORDER
     Dosage: 400 MG, 1 DAYS, ORAL
     Route: 048
     Dates: start: 19950401, end: 19950429
  2. CIPROFIBRATE(CIPROFIBRATE) [Suspect]
     Indication: HYPERLIPIDAEMIA
     Dosage: 200 MG, QD, ORAL
     Route: 048
     Dates: start: 19941001, end: 19950429

REACTIONS (6)
  - CONTRAST MEDIA REACTION [None]
  - DRUG INTERACTION [None]
  - DRUG TOXICITY [None]
  - MUSCULOSKELETAL STIFFNESS [None]
  - RENAL FAILURE ACUTE [None]
  - RHABDOMYOLYSIS [None]
